FAERS Safety Report 4455742-9 (Version None)
Quarter: 2004Q3

REPORT INFORMATION
  Report Type: 
  Country: None (occurrence: None)
  Receive Date: 20040917
  Receipt Date: 20040901
  Transmission Date: 20050211
  Serious: Yes (Hospitalization, Other)
  Sender: FDA-Public Use
  Company Number: USA040977233

PATIENT
  Age: 45 Year
  Sex: Male
  Weight: 136 kg

DRUGS (4)
  1. ZYPREXA [Suspect]
     Dosage: 15 MG
     Dates: start: 20040501, end: 20040501
  2. ZYPREXA [Suspect]
     Indication: SOMNOLENCE
     Dosage: 30 MG
     Dates: start: 20040601
  3. ABILIFY [Concomitant]
  4. DEPAKOTE [Concomitant]

REACTIONS (4)
  - ABNORMAL BEHAVIOUR [None]
  - LOSS OF CONSCIOUSNESS [None]
  - PRESCRIBED OVERDOSE [None]
  - SLEEP WALKING [None]
